FAERS Safety Report 7483658-2 (Version None)
Quarter: 2011Q2

REPORT INFORMATION
  Report Type: 
  Country: None (occurrence: None)
  Receive Date: 20110517
  Receipt Date: 20110515
  Transmission Date: 20111010
  Serious: No
  Sender: FDA-Public Use
  Company Number: US-PFIZER INC-2011104038

PATIENT
  Sex: Male
  Weight: 71 kg

DRUGS (6)
  1. LIPITOR [Suspect]
     Indication: BLOOD CHOLESTEROL INCREASED
     Dosage: 10 MG, DAILY
     Route: 048
     Dates: start: 20100101, end: 20110501
  2. NORVIR [Concomitant]
     Indication: HIV INFECTION
     Dosage: UNK
  3. CELEXA [Concomitant]
     Dosage: UNK
  4. ASPIRIN [Concomitant]
     Dosage: UNK, DAILY
  5. REYATAZ [Concomitant]
     Indication: HIV INFECTION
     Dosage: UNK
  6. TRUVADA [Concomitant]
     Indication: HIV INFECTION
     Dosage: UNK

REACTIONS (1)
  - MEMORY IMPAIRMENT [None]
